FAERS Safety Report 23933568 (Version 1)
Quarter: 2024Q2

REPORT INFORMATION
  Report Type: Spontaneous
  Country: CN (occurrence: CN)
  Receive Date: 20240603
  Receipt Date: 20240603
  Transmission Date: 20240715
  Serious: Yes (Hospitalization, Other)
  Sender: FDA-Public Use
  Company Number: CN-MEITHEAL-2024MPLIT00150

PATIENT
  Age: 55 Year
  Sex: Male

DRUGS (4)
  1. DOCETAXEL [Suspect]
     Active Substance: DOCETAXEL\DOCETAXEL ANHYDROUS
     Indication: Thymic carcinoma
     Dosage: 6 CYCLES
     Route: 065
  2. PLATINUM [Suspect]
     Active Substance: PLATINUM
     Indication: Thymic carcinoma
     Dosage: 6 CYCLES
     Route: 065
  3. PACLITAXEL [Suspect]
     Active Substance: PACLITAXEL
     Indication: Thymic carcinoma
     Dosage: 2 CYCLES
     Route: 065
  4. CISPLATIN [Suspect]
     Active Substance: CISPLATIN
     Indication: Thymic carcinoma
     Dosage: 2 CYCLES
     Route: 065

REACTIONS (1)
  - Arterial injury [Recovered/Resolved]
